FAERS Safety Report 9714455 (Version 2)
Quarter: 2015Q3

REPORT INFORMATION
  Report Type: Spontaneous
  Country: US (occurrence: US)
  Receive Date: 20131126
  Receipt Date: 20150803
  Transmission Date: 20151125
  Serious: No
  Sender: FDA-Public Use
  Company Number: US-GILEAD-2008-0018735

PATIENT
  Age: 65 Year
  Sex: Female

DRUGS (10)
  1. METOPROLOL ER [Concomitant]
     Active Substance: METOPROLOL SUCCINATE
  2. LETAIRIS [Suspect]
     Active Substance: AMBRISENTAN
     Indication: PULMONARY ARTERIAL HYPERTENSION
     Route: 048
     Dates: start: 20070511, end: 200808
  3. ADVAIR HFA [Concomitant]
     Active Substance: FLUTICASONE PROPIONATE\SALMETEROL XINAFOATE
  4. LANTUS [Concomitant]
     Active Substance: INSULIN GLARGINE
  5. REVATIO [Concomitant]
     Active Substance: SILDENAFIL CITRATE
  6. AMARYL [Concomitant]
     Active Substance: GLIMEPIRIDE
  7. DIGOXIN. [Concomitant]
     Active Substance: DIGOXIN
  8. HUMALOG [Concomitant]
     Active Substance: INSULIN LISPRO
  9. LETAIRIS [Suspect]
     Active Substance: AMBRISENTAN
     Route: 048
     Dates: start: 200808
  10. ALBUTEROL. [Concomitant]
     Active Substance: ALBUTEROL

REACTIONS (1)
  - Nasal congestion [Unknown]

NARRATIVE: CASE EVENT DATE: 200808
